FAERS Safety Report 9192210 (Version 1)
Quarter: 2013Q1

REPORT INFORMATION
  Report Type: Spontaneous
  Country: FR (occurrence: None)
  Receive Date: 20130325
  Receipt Date: 20130325
  Transmission Date: 20140127
  Serious: Yes (Other)
  Sender: FDA-Public Use
  Company Number: 2013-04761

PATIENT
  Age: 51 Year
  Sex: Male

DRUGS (3)
  1. PACLITAXEL (UNKNOWN) (PACLITAXEL) UNK, UNKUNK [Suspect]
     Indication: TRANSITIONAL CELL CARCINOMA
     Route: 042
  2. PACLITAXEL (UNKNOWN) (PACLITAXEL) UNK, UNKUNK [Suspect]
     Route: 042
  3. LAPATINIB [Suspect]
     Indication: TRANSITIONAL CELL CARCINOMA
     Route: 048

REACTIONS (4)
  - Diarrhoea [None]
  - Drug interaction [None]
  - Metastases to liver [None]
  - Metastases to lung [None]
